FAERS Safety Report 23444966 (Version 1)
Quarter: 2024Q1

REPORT INFORMATION
  Report Type: Report from Study
  Country: US (occurrence: US)
  Receive Date: 20240125
  Receipt Date: 20240125
  Transmission Date: 20240409
  Serious: Yes (Other)
  Sender: FDA-Public Use
  Company Number: US-BIOGEN-2024BI01246216

PATIENT
  Sex: Male

DRUGS (3)
  1. ADUHELM [Suspect]
     Active Substance: ADUCANUMAB-AVWA
     Indication: Dementia Alzheimer^s type
     Route: 050
     Dates: end: 2022
  2. LEXAPRO [Concomitant]
     Active Substance: ESCITALOPRAM OXALATE
     Indication: Product used for unknown indication
     Route: 050
  3. NAMENDA XR [Concomitant]
     Active Substance: MEMANTINE HYDROCHLORIDE
     Indication: Product used for unknown indication
     Route: 050

REACTIONS (1)
  - Brain oedema [Unknown]
